FAERS Safety Report 7709539-4 (Version None)
Quarter: 2011Q3

REPORT INFORMATION
  Report Type: 
  Country: None (occurrence: None)
  Receive Date: 20110825
  Receipt Date: 20110819
  Transmission Date: 20111222
  Serious: Yes (Hospitalization, Other)
  Sender: FDA-Public Use
  Company Number: US-B.I. PHARMACEUTICALS,INC./RIDGEFIELD-2011-BP-18351BP

PATIENT
  Age: 74 Year
  Sex: Female
  Weight: 61.69 kg

DRUGS (6)
  1. LASIX [Concomitant]
     Dosage: 20 MG
     Dates: start: 20061023
  2. LOPRESSOR [Concomitant]
     Dosage: 200 MG
     Dates: start: 20061214
  3. LANOXIN [Concomitant]
     Dosage: 0.25 MG
     Dates: start: 20061023
  4. ALTACE [Concomitant]
     Dosage: 5 MG
     Dates: start: 20061023
  5. GEMFIBROZIL [Concomitant]
     Dosage: 1200 MG
     Dates: start: 20070201, end: 20110627
  6. PRADAXA [Suspect]
     Indication: ATRIAL FIBRILLATION
     Dosage: 300 MG
     Dates: start: 20110307, end: 20110616

REACTIONS (8)
  - ANAEMIA [None]
  - FATIGUE [None]
  - OEDEMA PERIPHERAL [None]
  - RIGHT ATRIAL DILATATION [None]
  - WEIGHT INCREASED [None]
  - PULMONARY HYPERTENSION [None]
  - DYSPNOEA [None]
  - DILATATION VENTRICULAR [None]
